FAERS Safety Report 23679641 (Version 2)
Quarter: 2024Q2

REPORT INFORMATION
  Report Type: Spontaneous
  Country: US (occurrence: US)
  Receive Date: 20240327
  Receipt Date: 20240422
  Transmission Date: 20240715
  Serious: Yes (Other)
  Sender: FDA-Public Use
  Company Number: US-BAYER-2024A043753

PATIENT
  Age: 41 Year
  Sex: Female

DRUGS (1)
  1. MIRENA [Suspect]
     Active Substance: LEVONORGESTREL
     Indication: Contraception
     Dosage: 20?G/DAY
     Route: 015
     Dates: start: 20170731

REACTIONS (3)
  - Pregnancy with contraceptive device [None]
  - Drug ineffective [None]
  - Haemorrhage in pregnancy [Recovered/Resolved]

NARRATIVE: CASE EVENT DATE: 20240321
